FAERS Safety Report 5856939-3 (Version None)
Quarter: 2008Q3

REPORT INFORMATION
  Report Type: 
  Country: None (occurrence: None)
  Receive Date: 20080818
  Receipt Date: 20080616
  Transmission Date: 20090109
  Serious: No
  Sender: FDA-Public Use
  Company Number: WAES 0806USA03163

PATIENT
  Age: 47 Year
  Sex: Male

DRUGS (6)
  1. JANUVIA [Suspect]
     Indication: DIABETES MELLITUS
     Dosage: 100 MG/DAILY/PO
     Route: 048
     Dates: start: 20080613
  2. CIALIS [Concomitant]
  3. LIDODERM [Concomitant]
  4. NEXIUM [Concomitant]
  5. ACYCLOVIR [Concomitant]
  6. CYTARABINE (+) METHOTREXATE (+) [Concomitant]

REACTIONS (1)
  - HEADACHE [None]
